FAERS Safety Report 5220746-5 (Version None)
Quarter: 2007Q1

REPORT INFORMATION
  Report Type: 
  Country: None (occurrence: None)
  Receive Date: 20070125
  Receipt Date: 20070125
  Transmission Date: 20070707
  Serious: Yes (Hospitalization)
  Sender: FDA-Public Use
  Company Number: None

PATIENT
  Sex: Female
  Weight: 96.6162 kg

DRUGS (2)
  1. TAMIFLU [Suspect]
     Indication: INFLUENZA
     Dosage: 2 PILLS ON 1/25/06, 1 PILL ON 1/26/06
     Dates: start: 20060125
  2. ADVIL [Concomitant]

REACTIONS (3)
  - NAUSEA [None]
  - THROAT TIGHTNESS [None]
  - VOMITING [None]
